FAERS Safety Report 7956416-X (Version None)
Quarter: 2011Q4

REPORT INFORMATION
  Report Type: 
  Country: None (occurrence: None)
  Receive Date: 20111205
  Receipt Date: 20111122
  Transmission Date: 20120403
  Serious: Yes (Hospitalization)
  Sender: FDA-Public Use
  Company Number: AU-JNJFOC-20111200931

PATIENT
  Sex: Male
  Weight: 92 kg

DRUGS (2)
  1. ABIRATERONE ACETATE [Suspect]
     Indication: PROSTATE CANCER METASTATIC
     Route: 048
     Dates: start: 20111117
  2. ABIRATERONE ACETATE [Suspect]
     Route: 048

REACTIONS (1)
  - BONE PAIN [None]
